FAERS Safety Report 9915223 (Version 2)
Quarter: 2014Q1

REPORT INFORMATION
  Report Type: Spontaneous
  Country: US (occurrence: US)
  Receive Date: 20140220
  Receipt Date: 20140313
  Transmission Date: 20141002
  Serious: Yes (Hospitalization)
  Sender: FDA-Public Use
  Company Number: US-009507513-1402USA008918

PATIENT
  Age: 32 Year
  Sex: Male

DRUGS (6)
  1. PEGINTRON [Suspect]
     Indication: HEPATITIS C
     Dosage: REDIPEN, 96 MCG DAILY
     Route: 058
     Dates: start: 20140213
  2. HUMALOG [Concomitant]
  3. PRILOSEC [Concomitant]
     Route: 048
  4. ASPIRIN [Concomitant]
  5. SYNTHROID [Concomitant]
  6. DEXTROSE [Concomitant]
     Dosage: AS NEEDED
     Route: 048

REACTIONS (2)
  - Overdose [Unknown]
  - Fatigue [Unknown]
